FAERS Safety Report 13720400 (Version 2)
Quarter: 2017Q4

REPORT INFORMATION
  Report Type: Report from Study
  Country: GB (occurrence: GB)
  Receive Date: 20170706
  Receipt Date: 20171215
  Transmission Date: 20180320
  Serious: Yes (Other)
  Sender: FDA-Public Use
  Company Number: GB-AMGEN-GBRSL2017099578

PATIENT
  Age: 38 Year
  Sex: Female

DRUGS (2)
  1. ARANESP [Suspect]
     Active Substance: DARBEPOETIN ALFA
     Indication: PRODUCT USED FOR UNKNOWN INDICATION
     Dosage: 100 MUG, UNK
     Route: 065
  2. ARANESP [Suspect]
     Active Substance: DARBEPOETIN ALFA
     Dosage: 60 MUG, UNK
     Route: 065

REACTIONS (4)
  - Peritoneal dialysis [Not Recovered/Not Resolved]
  - Haemoglobin increased [Unknown]
  - Hypertension [Unknown]
  - Renal disorder [Unknown]

NARRATIVE: CASE EVENT DATE: 201711
